FAERS Safety Report 19001704 (Version 3)
Quarter: 2021Q2

REPORT INFORMATION
  Report Type: Spontaneous
  Country: US (occurrence: US)
  Receive Date: 20210312
  Receipt Date: 20210504
  Transmission Date: 20210717
  Serious: No
  Sender: FDA-Public Use
  Company Number: US-FARMAPROD-202012-1750

PATIENT
  Sex: Female

DRUGS (33)
  1. TOPIRAMATE. [Concomitant]
     Active Substance: TOPIRAMATE
  2. MULTIVITAMIN DAILY TABLET [Concomitant]
  3. MOXIFLOXACIN. [Concomitant]
     Active Substance: MOXIFLOXACIN
  4. MIDODRINE HCL [Concomitant]
     Active Substance: MIDODRINE HYDROCHLORIDE
  5. LORAZEPAM. [Concomitant]
     Active Substance: LORAZEPAM
  6. PROBIOTIC/ACIDOPHILUS [Concomitant]
  7. GABAPENTIN. [Concomitant]
     Active Substance: GABAPENTIN
  8. ACETAMINOPHEN. [Concomitant]
     Active Substance: ACETAMINOPHEN
  9. OXERVATE [Suspect]
     Active Substance: CENEGERMIN-BKBJ
     Indication: NEUROTROPHIC KERATOPATHY
     Route: 047
     Dates: start: 20201214
  10. BRIMONIDINE TARTRATE. [Concomitant]
     Active Substance: BRIMONIDINE TARTRATE
  11. FERROUS FUMARATE [Concomitant]
     Active Substance: FERROUS FUMARATE
     Dosage: 324(106) MG TABLET
  12. VITAMIN D2 [Concomitant]
     Active Substance: ERGOCALCIFEROL
  13. SERTRALINE HCL [Concomitant]
     Active Substance: SERTRALINE HYDROCHLORIDE
  14. LOVASTATIN. [Concomitant]
     Active Substance: LOVASTATIN
  15. LEVOTHYROXINE. [Concomitant]
     Active Substance: LEVOTHYROXINE
  16. GABAPENTIN. [Concomitant]
     Active Substance: GABAPENTIN
  17. CALCIUM/VITAMIN D K [Concomitant]
  18. POTASSIUM CHLORIDE NORMAL SALINE [Concomitant]
  19. MAGNESIUM OXIDE. [Concomitant]
     Active Substance: MAGNESIUM OXIDE
  20. GAS RELIEF [Concomitant]
     Active Substance: DIMETHICONE
  21. VITAMINE C [Concomitant]
     Active Substance: ASCORBIC ACID
  22. DIGOXIN. [Concomitant]
     Active Substance: DIGOXIN
  23. VIMPAT [Concomitant]
     Active Substance: LACOSAMIDE
  24. VASCEPA [Concomitant]
     Active Substance: ICOSAPENT ETHYL
  25. SOTALOL. [Concomitant]
     Active Substance: SOTALOL
  26. LUMIGAN [Concomitant]
     Active Substance: BIMATOPROST
  27. LIDOCAINE/PRILOCAINE [Concomitant]
     Active Substance: LIDOCAINE\PRILOCAINE
     Dosage: PACKET
  28. SODIUM BICARBONATE. [Concomitant]
     Active Substance: SODIUM BICARBONATE
  29. RESTASIS [Concomitant]
     Active Substance: CYCLOSPORINE
  30. KEPPRA [Concomitant]
     Active Substance: LEVETIRACETAM
  31. HYDRALAZINE HCL [Concomitant]
     Active Substance: HYDRALAZINE HYDROCHLORIDE
  32. ASPIRINE [Concomitant]
     Active Substance: ASPIRIN
  33. AMLODIPINE BESYLATE/BENAZEPRIL [Concomitant]

REACTIONS (7)
  - Lacrimation increased [Unknown]
  - Pain in jaw [Unknown]
  - Eye pain [Unknown]
  - Wrong technique in product usage process [Unknown]
  - Headache [Unknown]
  - Ocular hyperaemia [Unknown]
  - Eye irritation [Unknown]
